FAERS Safety Report 9485163 (Version 1)
Quarter: 2013Q3

REPORT INFORMATION
  Report Type: Spontaneous
  Country: CN (occurrence: CN)
  Receive Date: 20130828
  Receipt Date: 20130828
  Transmission Date: 20140515
  Serious: Yes (Death, Other)
  Sender: FDA-Public Use
  Company Number: PHHY2013CN093158

PATIENT
  Age: 13 Year
  Sex: Male

DRUGS (3)
  1. FLUDARABINE [Suspect]
     Indication: ACUTE LEUKAEMIA
  2. CYTARABINE [Suspect]
     Indication: ACUTE LEUKAEMIA
  3. G-CSF [Concomitant]
     Indication: CHRONIC MYELOID LEUKAEMIA

REACTIONS (5)
  - Disseminated intravascular coagulation [Fatal]
  - Lung infection [Fatal]
  - Klebsiella sepsis [Fatal]
  - Acute leukaemia [Unknown]
  - Drug ineffective [Unknown]
